FAERS Safety Report 16158312 (Version 1)
Quarter: 2019Q2

REPORT INFORMATION
  Report Type: Spontaneous
  Country: None (occurrence: FR)
  Receive Date: 20190404
  Receipt Date: 20190404
  Transmission Date: 20190711
  Serious: Yes (Other)
  Sender: FDA-Public Use
  Company Number: FR-PROVELL PHARMACEUTICALS-2065284

PATIENT
  Age: 65 Year
  Sex: Female
  Weight: 78 kg

DRUGS (2)
  1. EUTHYROX [Suspect]
     Active Substance: LEVOTHYROXINE SODIUM
     Indication: POST PROCEDURAL HYPOTHYROIDISM
     Dates: start: 201703, end: 20171012
  2. COTAREG (CO-DIOVAN) [Concomitant]

REACTIONS (17)
  - Fall [None]
  - Fatigue [None]
  - Blood thyroid stimulating hormone increased [Recovered/Resolved]
  - Rotator cuff syndrome [Not Recovered/Not Resolved]
  - Blood pressure decreased [None]
  - Blood pressure increased [None]
  - Vomiting [None]
  - Dizziness [None]
  - Alopecia [None]
  - Cerumen impaction [Recovered/Resolved]
  - Headache [None]
  - Malaise [Recovered/Resolved]
  - Syncope [None]
  - Loss of consciousness [None]
  - Anal incontinence [None]
  - Overweight [None]
  - Diarrhoea [None]

NARRATIVE: CASE EVENT DATE: 2017
